FAERS Safety Report 10179150 (Version 1)
Quarter: 2014Q2

REPORT INFORMATION
  Report Type: Spontaneous
  Country: FR (occurrence: FR)
  Receive Date: 20140519
  Receipt Date: 20140519
  Transmission Date: 20141212
  Serious: Yes (Hospitalization)
  Sender: FDA-Public Use
  Company Number: FR-TEVA-482133ISR

PATIENT
  Age: 30 Year
  Sex: Female

DRUGS (1)
  1. IBUPROFEN 400 MG [Suspect]
     Indication: BACK PAIN
     Dosage: MORE THAN 20 TABLETS IN 2 DAYS, REPRESENTING 152MG/KG

REACTIONS (8)
  - Inappropriate antidiuretic hormone secretion [Recovered/Resolved]
  - Incorrect dose administered [None]
  - Pyrexia [None]
  - Inflammation [None]
  - Encephalopathy [None]
  - Meningism [None]
  - Convulsion [None]
  - Renal failure acute [None]
